FAERS Safety Report 7042730-1 (Version None)
Quarter: 2010Q4

REPORT INFORMATION
  Report Type: 
  Country: None (occurrence: None)
  Receive Date: 20101013
  Receipt Date: 20100329
  Transmission Date: 20110411
  Serious: No
  Sender: FDA-Public Use
  Company Number: US-ASTRAZENECA-2010SE13857

PATIENT
  Age: 701 Month
  Sex: Female
  Weight: 63.5 kg

DRUGS (3)
  1. SYMBICORT [Suspect]
     Indication: CHRONIC OBSTRUCTIVE PULMONARY DISEASE
     Dosage: 2 PUFFS, 160/4.5 UG
     Route: 055
     Dates: start: 20090101
  2. THEOPHYLLINE [Concomitant]
  3. PROAIR HFA [Concomitant]

REACTIONS (1)
  - TOOTH LOSS [None]
